FAERS Safety Report 6539948-0 (Version None)
Quarter: 2010Q1

REPORT INFORMATION
  Report Type: 
  Country: None (occurrence: None)
  Receive Date: 20100115
  Receipt Date: 20100107
  Transmission Date: 20100710
  Serious: Yes (Hospitalization)
  Sender: FDA-Public Use
  Company Number: ES-ELI_LILLY_AND_COMPANY-ES201001001099

PATIENT
  Age: 75 Year
  Sex: Female

DRUGS (3)
  1. FORTEO [Suspect]
     Indication: OSTEOPOROSIS
     Dosage: 20 UG, UNK
     Route: 058
     Dates: start: 20091101, end: 20100105
  2. CALCIUM [Concomitant]
     Indication: OSTEOPOROSIS
  3. NOLOTIL [Concomitant]
     Indication: PAIN

REACTIONS (3)
  - ASTHENIA [None]
  - BRADYCARDIA [None]
  - DECREASED APPETITE [None]
